FAERS Safety Report 8554900-1 (Version None)
Quarter: 2012Q3

REPORT INFORMATION
  Report Type: 
  Country: None (occurrence: None)
  Receive Date: 20120731
  Receipt Date: 20120723
  Transmission Date: 20120928
  Serious: Yes (Hospitalization, Other)
  Sender: FDA-Public Use
  Company Number: BR-ELI_LILLY_AND_COMPANY-BR201202001139

PATIENT
  Sex: Female
  Weight: 46 kg

DRUGS (5)
  1. FORTEO [Suspect]
     Indication: OSTEOPOROSIS
     Dosage: UNK, UNKNOWN
     Route: 058
     Dates: start: 20110701, end: 20120101
  2. SEROQUEL [Concomitant]
     Dosage: UNK, UNKNOWN
     Route: 065
  3. ACETAMINOPHEN W/ CODEINE [Concomitant]
     Dosage: UNK, UNKNOWN
     Route: 065
  4. TRAZODONE HYDROCHLORIDE [Concomitant]
     Dosage: UNK, UNKNOWN
     Route: 065
  5. ALPRAZOLAM [Concomitant]
     Dosage: UNK, UNKNOWN
     Route: 065

REACTIONS (5)
  - BONE PAIN [None]
  - HYDROCEPHALUS [None]
  - CONVULSION [None]
  - SURGERY [None]
  - CEREBROVASCULAR ACCIDENT [None]
